FAERS Safety Report 15534858 (Version 3)
Quarter: 2018Q4

REPORT INFORMATION
  Report Type: Report from Study
  Country: US (occurrence: US)
  Receive Date: 20181022
  Receipt Date: 20181228
  Transmission Date: 20190205
  Serious: Yes (Other)
  Sender: FDA-Public Use
  Company Number: US-TEVA-2018-US-964161

PATIENT
  Age: 63 Year
  Sex: Female

DRUGS (1)
  1. COPAXONE [Suspect]
     Active Substance: GLATIRAMER ACETATE
     Indication: MULTIPLE SCLEROSIS
     Route: 058
     Dates: start: 20140416

REACTIONS (11)
  - Fall [Unknown]
  - Palpitations [Unknown]
  - Immediate post-injection reaction [Unknown]
  - Pain in extremity [Unknown]
  - Inflammation [Unknown]
  - Walking aid user [Unknown]
  - Therapy change [Unknown]
  - Flushing [Unknown]
  - Loss of consciousness [Recovered/Resolved]
  - Fatigue [Unknown]
  - Lower limb fracture [Unknown]

NARRATIVE: CASE EVENT DATE: 20180924
